FAERS Safety Report 9240294 (Version 2)
Quarter: 2013Q2

REPORT INFORMATION
  Report Type: Spontaneous
  Country: JP (occurrence: JP)
  Receive Date: 20130418
  Receipt Date: 20130522
  Transmission Date: 20140414
  Serious: Yes (Hospitalization)
  Sender: FDA-Public Use
  Company Number: JP-MYLANLABS-2013S1007750

PATIENT
  Age: 77 Year
  Sex: Male

DRUGS (8)
  1. EPIRUBICIN [Suspect]
     Indication: HEPATOCELLULAR CARCINOMA
     Route: 013
     Dates: start: 20130318, end: 20130318
  2. METILDIGOXIN [Concomitant]
     Indication: ATRIAL FIBRILLATION
  3. PRAZAXA [Concomitant]
     Indication: PROPHYLAXIS
     Route: 048
     Dates: start: 20130318
  4. URSODEOXYCHOLIC ACID [Concomitant]
     Indication: HEPATIC CIRRHOSIS
     Route: 048
  5. INNOLET [Concomitant]
     Indication: DIABETES MELLITUS
     Route: 058
     Dates: start: 20130201
  6. ISOLEUCINE [Concomitant]
     Indication: HEPATIC CIRRHOSIS
     Route: 048
     Dates: start: 20130403
  7. AMINOLEBAN EN [Concomitant]
     Indication: HEPATIC CIRRHOSIS
     Route: 048
     Dates: start: 20130328
  8. TSU-68 [Concomitant]
     Indication: HEPATOCELLULAR CARCINOMA
     Route: 048
     Dates: start: 20130402

REACTIONS (1)
  - Cholecystitis acute [Recovered/Resolved]
